FAERS Safety Report 10335947 (Version 2)
Quarter: 2014Q3

REPORT INFORMATION
  Report Type: Spontaneous
  Country: DE (occurrence: JP)
  Receive Date: 20140723
  Receipt Date: 20140804
  Transmission Date: 20150326
  Serious: Yes (Hospitalization)
  Sender: FDA-Public Use
  Company Number: JP-FRI-1000069175

PATIENT
  Age: 90 Year
  Sex: Male
  Weight: 40 kg

DRUGS (5)
  1. MEMANTINE [Suspect]
     Active Substance: MEMANTINE
     Dosage: 5 MG
  2. PSYCHOLEPTICS [Suspect]
     Active Substance: UNSPECIFIED INGREDIENT
  3. MEMANTINE [Suspect]
     Active Substance: MEMANTINE
     Dosage: 15 MG
  4. MEMANTINE [Suspect]
     Active Substance: MEMANTINE
     Dosage: 20 MG
  5. MEMANTINE [Suspect]
     Active Substance: MEMANTINE
     Dosage: 10 MG

REACTIONS (4)
  - Sleep apnoea syndrome [Not Recovered/Not Resolved]
  - Dysphagia [Not Recovered/Not Resolved]
  - Dyskinesia [Not Recovered/Not Resolved]
  - Pyrexia [Not Recovered/Not Resolved]
